FAERS Safety Report 24701285 (Version 2)
Quarter: 2024Q4

REPORT INFORMATION
  Report Type: Report from Study
  Country: US (occurrence: US)
  Receive Date: 20241205
  Receipt Date: 20241210
  Transmission Date: 20250114
  Serious: Yes (Other)
  Sender: ABBVIE
  Company Number: US-ABBVIE-6029694

PATIENT
  Age: 75 Year
  Sex: Male

DRUGS (2)
  1. DUOPA [Suspect]
     Active Substance: CARBIDOPA\LEVODOPA
     Indication: Parkinson^s disease
     Route: 050
     Dates: start: 20171012
  2. DUOPA [Suspect]
     Active Substance: CARBIDOPA\LEVODOPA

REACTIONS (18)
  - Gastric ulcer haemorrhage [Unknown]
  - Stoma site pain [Unknown]
  - Dyskinesia [Not Recovered/Not Resolved]
  - Dry mouth [Unknown]
  - Jaw disorder [Unknown]
  - Stoma site odour [Unknown]
  - Stoma site discharge [Not Recovered/Not Resolved]
  - Infection [Unknown]
  - Iron deficiency [Unknown]
  - Fatigue [Unknown]
  - Scar [Unknown]
  - Acquired diaphragmatic eventration [Not Recovered/Not Resolved]
  - Rib fracture [Unknown]
  - Ligament rupture [Unknown]
  - Arthropathy [Not Recovered/Not Resolved]
  - Fall [Unknown]
  - Embedded device [Unknown]
  - Stoma site hypergranulation [Not Recovered/Not Resolved]
